FAERS Safety Report 23276833 (Version 2)
Quarter: 2025Q2

REPORT INFORMATION
  Report Type: Spontaneous
  Country: JP (occurrence: JP)
  Receive Date: 20231208
  Receipt Date: 20250408
  Transmission Date: 20250716
  Serious: Yes (Life-Threatening, Other)
  Sender: ALEXION PHARMACEUTICALS
  Company Number: 2023A275678

PATIENT
  Age: 69 Year

DRUGS (5)
  1. IMFINZI [Suspect]
     Active Substance: DURVALUMAB
     Indication: Non-small cell lung cancer
     Dosage: 1500 MILLIGRAM, Q3W
  2. IMJUDO [Suspect]
     Active Substance: TREMELIMUMAB\TREMELIMUMAB-ACTL
     Indication: Non-small cell lung cancer
     Dosage: 75 MILLIGRAM, Q3W
  3. CARBOPLATIN [Concomitant]
     Active Substance: CARBOPLATIN
     Indication: Non-small cell lung cancer
     Route: 065
  4. PACLITAXEL [Concomitant]
     Active Substance: PACLITAXEL
     Indication: Non-small cell lung cancer
     Route: 065
  5. PEMBROLIZUMAB [Concomitant]
     Active Substance: PEMBROLIZUMAB
     Indication: Non-small cell lung cancer
     Route: 065

REACTIONS (2)
  - Aspartate aminotransferase increased [Recovered/Resolved]
  - Alanine aminotransferase increased [Recovered/Resolved]
